FAERS Safety Report 10263376 (Version 1)
Quarter: 2014Q2

REPORT INFORMATION
  Report Type: Spontaneous
  Country: US (occurrence: US)
  Receive Date: 20140626
  Receipt Date: 20140626
  Transmission Date: 20141212
  Serious: No
  Sender: FDA-Public Use
  Company Number: US-ASTRAZENECA-2014SE27366

PATIENT
  Age: 81 Year
  Sex: Male

DRUGS (1)
  1. BRILINTA [Suspect]
     Indication: ACUTE CORONARY SYNDROME
     Route: 048
     Dates: start: 201311, end: 20140417

REACTIONS (3)
  - Somnolence [Unknown]
  - Dyspnoea exertional [Not Recovered/Not Resolved]
  - Dizziness [Not Recovered/Not Resolved]
